FAERS Safety Report 15609338 (Version 1)
Quarter: 2018Q4

REPORT INFORMATION
  Report Type: Spontaneous
  Country: AT (occurrence: AT)
  Receive Date: 20181112
  Receipt Date: 20181112
  Transmission Date: 20190205
  Serious: Yes (Hospitalization)
  Sender: FDA-Public Use
  Company Number: AT-MYLANLABS-2018M1084425

PATIENT
  Age: 51 Year
  Sex: Female

DRUGS (3)
  1. GENTAMICIN. [Suspect]
     Active Substance: GENTAMICIN
     Indication: URINARY TRACT INFECTION
     Dosage: 80 MG, QD
     Route: 065
     Dates: start: 1973, end: 1973
  2. CEFALORIDINE [Suspect]
     Active Substance: CEPHALORIDINE
     Indication: URINARY TRACT INFECTION
     Dosage: 4 G, UNK
     Route: 065
     Dates: start: 1973, end: 1973
  3. FUROSEMIDE. [Suspect]
     Active Substance: FUROSEMIDE
     Indication: PRODUCT USED FOR UNKNOWN INDICATION
     Dosage: UNK
     Route: 065

REACTIONS (7)
  - Pleural effusion [Unknown]
  - Acute kidney injury [Recovering/Resolving]
  - Oliguria [Recovering/Resolving]
  - Blood creatinine increased [Recovering/Resolving]
  - Drug ineffective [Unknown]
  - Anuria [Recovering/Resolving]
  - Renal impairment [Recovered/Resolved]

NARRATIVE: CASE EVENT DATE: 197305
